FAERS Safety Report 4792474-1 (Version None)
Quarter: 2005Q4

REPORT INFORMATION
  Report Type: 
  Country: None (occurrence: None)
  Receive Date: 20051010
  Receipt Date: 20050929
  Transmission Date: 20060501
  Serious: Yes (Hospitalization)
  Sender: FDA-Public Use
  Company Number: FR-GLAXOSMITHKLINE-B0396385A

PATIENT
  Age: 35 Year
  Sex: Male

DRUGS (7)
  1. TIMENTIN [Suspect]
     Dosage: 5G THREE TIMES PER DAY
     Route: 042
     Dates: start: 20050824, end: 20050826
  2. ZELITREX [Concomitant]
     Route: 065
  3. NEORAL [Concomitant]
     Route: 065
  4. FLUCONAZOLE [Concomitant]
     Route: 065
  5. MOPRAL [Concomitant]
     Route: 065
  6. IMOVANE [Concomitant]
     Route: 065
  7. ORACILLINE [Concomitant]
     Route: 065

REACTIONS (4)
  - CHOLANGITIS [None]
  - CHOLESTASIS [None]
  - JAUNDICE [None]
  - LIVER DISORDER [None]
